FAERS Safety Report 14897427 (Version 2)
Quarter: 2018Q2

REPORT INFORMATION
  Report Type: Report from Study
  Country: CA (occurrence: CA)
  Receive Date: 20180515
  Receipt Date: 20180517
  Transmission Date: 20180711
  Serious: Yes (Other)
  Sender: FDA-Public Use
  Company Number: CA-GLAXOSMITHKLINE-CA2018GSK085473

PATIENT
  Age: 33 Year
  Sex: Female

DRUGS (1)
  1. SALBUTAMOL SULPHATE [Suspect]
     Active Substance: ALBUTEROL SULFATE
     Indication: PRODUCT USED FOR UNKNOWN INDICATION
     Dosage: UNK

REACTIONS (11)
  - Chest pain [Unknown]
  - Asthma [Unknown]
  - Drug ineffective [Unknown]
  - Decreased activity [Unknown]
  - Chest discomfort [Unknown]
  - Cough [Unknown]
  - Blood test abnormal [Unknown]
  - Diabetes mellitus inadequate control [Unknown]
  - Dyspnoea [Unknown]
  - Wheezing [Unknown]
  - Fatigue [Unknown]

NARRATIVE: CASE EVENT DATE: 20180307
